FAERS Safety Report 14152179 (Version 2)
Quarter: 2017Q4

REPORT INFORMATION
  Report Type: Report from Study
  Country: JP (occurrence: JP)
  Receive Date: 20171102
  Receipt Date: 20171213
  Transmission Date: 20180321
  Serious: Yes (Life-Threatening, Hospitalization, Disabling, Other)
  Sender: FDA-Public Use
  Company Number: JP-ACTELION-A-CH2017-149239

PATIENT
  Age: 63 Year
  Sex: Female
  Weight: 46 kg

DRUGS (13)
  1. LIVACT [Concomitant]
     Active Substance: AMINO ACIDS
  2. OPSUMIT [Suspect]
     Active Substance: MACITENTAN
     Indication: PULMONARY ARTERIAL HYPERTENSION
     Dosage: 10 MG, QD
     Route: 048
     Dates: start: 20160907
  3. BONALON [Concomitant]
     Active Substance: ALENDRONATE SODIUM
  4. MONILAC [Concomitant]
     Active Substance: LACTULOSE
  5. TAKECAB [Concomitant]
     Active Substance: VONOPRAZAN FUMURATE
  6. LASIX [Concomitant]
     Active Substance: FUROSEMIDE
  7. TRAZENTA [Concomitant]
     Active Substance: LINAGLIPTIN
  8. GLUCONSAN K [Concomitant]
     Active Substance: POTASSIUM GLUCONATE
  9. ADEMPAS [Concomitant]
     Active Substance: RIOCIGUAT
  10. MAGNESIUM OXIDE. [Concomitant]
     Active Substance: MAGNESIUM OXIDE
  11. URSO [Concomitant]
     Active Substance: URSODIOL
  12. GASTER [Concomitant]
     Active Substance: FAMOTIDINE
  13. KANAMYCIN MONOSULFATE [Concomitant]

REACTIONS (12)
  - Hepatocellular carcinoma [Recovering/Resolving]
  - Abdominal distension [Recovering/Resolving]
  - Peritonitis bacterial [Recovering/Resolving]
  - Hepatic encephalopathy [Recovering/Resolving]
  - Ascites [Recovering/Resolving]
  - Swelling [Recovering/Resolving]
  - Hepatic function abnormal [Unknown]
  - Weight decreased [Recovering/Resolving]
  - Weight increased [Recovering/Resolving]
  - Radius fracture [Recovered/Resolved]
  - Pancytopenia [Recovering/Resolving]
  - Anaemia [Recovering/Resolving]

NARRATIVE: CASE EVENT DATE: 201610
